FAERS Safety Report 8431509-1 (Version None)
Quarter: 2012Q2

REPORT INFORMATION
  Report Type: 
  Country: None (occurrence: None)
  Receive Date: 20120613
  Receipt Date: 20120607
  Transmission Date: 20120825
  Serious: Yes (Hospitalization)
  Sender: FDA-Public Use
  Company Number: SG-BAYER-2010-005799

PATIENT
  Age: 61 Year
  Sex: Male
  Weight: 73 kg

DRUGS (14)
  1. ERLOTINIB HYDROCHLORIDE [Suspect]
     Dosage: 100 MG, QD
     Route: 048
     Dates: start: 20100927, end: 20101012
  2. SORAFENIB (RAF KINASE INHIBITOR) [Suspect]
     Indication: HEPATIC NEOPLASM MALIGNANT
     Dosage: 400 MG, BID
     Route: 048
     Dates: start: 20100816, end: 20100819
  3. SORAFENIB (RAF KINASE INHIBITOR) [Suspect]
     Dosage: 400 MG, OM
     Route: 048
     Dates: start: 20101022, end: 20101102
  4. MYLANTA [ALUMINIUM HYDROXIDE,MAGNESIUM HYDROXIDE,SIMETICONE] [Concomitant]
     Indication: GASTRITIS
     Dosage: 30 ML, QD
     Route: 048
     Dates: start: 20101021
  5. SORAFENIB (RAF KINASE INHIBITOR) [Suspect]
     Dosage: 400 MG, BID
     Route: 048
     Dates: start: 20100826, end: 20100926
  6. RANITIDINE [Concomitant]
     Indication: GASTRITIS
     Dosage: 300 MG, QD
     Route: 048
     Dates: start: 20100819
  7. ERLOTINIB HYDROCHLORIDE [Suspect]
     Dosage: 100 MG, QD
     Route: 048
     Dates: start: 20101103, end: 20101130
  8. ERLOTINIB HYDROCHLORIDE [Suspect]
     Dosage: 100 MG, QD
     Route: 048
     Dates: start: 20101022, end: 20101102
  9. SORAFENIB (RAF KINASE INHIBITOR) [Suspect]
     Dosage: 400 MG, OM
     Route: 048
     Dates: start: 20101102, end: 20101130
  10. TRAMADOL HCL [Concomitant]
     Indication: ABDOMINAL PAIN UPPER
     Dosage: 150 MG, PRN
     Route: 048
     Dates: start: 20100821
  11. SORAFENIB (RAF KINASE INHIBITOR) [Suspect]
     Dosage: 400 MG, BID
     Route: 048
     Dates: start: 20100927, end: 20101012
  12. METFORMIN HCL [Concomitant]
     Indication: DIABETES MELLITUS
     Dosage: 500 MG, UNK
     Route: 048
     Dates: start: 19980101
  13. ERLOTINIB HYDROCHLORIDE [Suspect]
     Indication: HEPATIC NEOPLASM MALIGNANT
     Dosage: 150 MG, QD
     Route: 048
     Dates: start: 20100816, end: 20100819
  14. ERLOTINIB HYDROCHLORIDE [Suspect]
     Dosage: 100 MG, QD
     Route: 048
     Dates: start: 20100826, end: 20100926

REACTIONS (4)
  - PYREXIA [None]
  - GASTROINTESTINAL HAEMORRHAGE [None]
  - KLEBSIELLA SEPSIS [None]
  - DIARRHOEA [None]
